FAERS Safety Report 13273844 (Version 1)
Quarter: 2017Q1

REPORT INFORMATION
  Report Type: Spontaneous
  Country: ES (occurrence: ES)
  Receive Date: 20170227
  Receipt Date: 20170227
  Transmission Date: 20170428
  Serious: Yes (Hospitalization, Other)
  Sender: FDA-Public Use
  Company Number: ES-GILEAD-2017-0257293

PATIENT
  Age: 77 Year
  Sex: Female

DRUGS (3)
  1. ZYDELIG [Suspect]
     Active Substance: IDELALISIB
     Dosage: UNK
     Route: 065
     Dates: start: 20150323, end: 201508
  2. RITUXIMAB [Concomitant]
     Active Substance: RITUXIMAB
     Indication: CHRONIC LYMPHOCYTIC LEUKAEMIA
     Dosage: UNK
     Route: 065
     Dates: start: 20150323, end: 201508
  3. ZYDELIG [Suspect]
     Active Substance: IDELALISIB
     Indication: CHRONIC LYMPHOCYTIC LEUKAEMIA
     Dosage: UNK
     Route: 065
     Dates: start: 201502, end: 201508

REACTIONS (3)
  - Pneumonitis [Unknown]
  - Pneumothorax [Recovered/Resolved]
  - Off label use [Recovered/Resolved]

NARRATIVE: CASE EVENT DATE: 2015
